FAERS Safety Report 21005000 (Version 2)
Quarter: 2022Q3

REPORT INFORMATION
  Report Type: Report from Study
  Country: NL (occurrence: NL)
  Receive Date: 20220624
  Receipt Date: 20220803
  Transmission Date: 20221026
  Serious: Yes (Death)
  Sender: FDA-Public Use
  Company Number: NL-NOVARTISPH-NVSC2022NL133154

PATIENT
  Age: 76 Year
  Sex: Female
  Weight: 44 kg

DRUGS (13)
  1. ACLASTA [Suspect]
     Active Substance: ZOLEDRONIC ACID
     Indication: Osteoporosis
     Dosage: 1 DOSAGE FORM, Q12MO (1.00 X PER 52 WEEKS)
     Route: 042
     Dates: start: 2015
  2. ACLASTA [Suspect]
     Active Substance: ZOLEDRONIC ACID
     Dosage: RECEIVED THE ACLASTA ONE MORE TIME
     Route: 042
     Dates: end: 2022
  3. CARBASPIRIN CALCIUM [Concomitant]
     Active Substance: CARBASPIRIN CALCIUM
     Indication: Product used for unknown indication
     Dosage: 1 DOSAGE FORM, QD (POWDER FORMULATION)
     Route: 048
  4. PERINDOPRIL ERBUMINE [Concomitant]
     Active Substance: PERINDOPRIL ERBUMINE
     Indication: Product used for unknown indication
     Dosage: 4 MG, QD
     Route: 048
  5. SIMVASTATIN [Concomitant]
     Active Substance: SIMVASTATIN
     Indication: Product used for unknown indication
     Dosage: 10 MG, QD
     Route: 065
  6. CHOLECALCIFEROL [Concomitant]
     Active Substance: CHOLECALCIFEROL
     Indication: Product used for unknown indication
     Dosage: 800 IU, QD
     Route: 048
  7. OXAZEPAM [Concomitant]
     Active Substance: OXAZEPAM
     Indication: Product used for unknown indication
     Dosage: 10 MG, TID, (3 TIMES DAILY 1 PIECE IF NEEDED)
     Route: 048
  8. OMEPRAZOLE [Concomitant]
     Active Substance: OMEPRAZOLE
     Indication: Product used for unknown indication
     Dosage: 20 MG, QD
     Route: 048
  9. ARTELAC [Concomitant]
     Indication: Product used for unknown indication
     Dosage: 3.2MG/ML VIAL 10ML, TID (1 DROP BOTH EYES)
     Route: 047
  10. ALBUTEROL [Concomitant]
     Active Substance: ALBUTEROL
     Indication: Product used for unknown indication
     Dosage: 2X 100UG/DO (IF NEEDED 4 X PER DAY)
     Route: 055
  11. PREDNISOLONE [Concomitant]
     Active Substance: PREDNISOLONE
     Indication: Immune thrombocytopenia
     Dosage: 1.5 X5 MG/ 2 X5MG (1 X PER DAY 1.5 PIECE ODD DAYS 1 T, EVEN DAYS 2T)
     Route: 048
  12. PREDNISOLONE [Concomitant]
     Active Substance: PREDNISOLONE
     Dosage: UNK
     Route: 065
  13. FUROSEMIDE CF [Concomitant]
     Indication: Product used for unknown indication
     Dosage: 40 MG, BID
     Route: 048

REACTIONS (4)
  - Microcytic anaemia [Fatal]
  - Condition aggravated [Fatal]
  - Hypophagia [Fatal]
  - Malaise [Unknown]

NARRATIVE: CASE EVENT DATE: 20220607
